FAERS Safety Report 11999041 (Version 1)
Quarter: 2016Q1

REPORT INFORMATION
  Report Type: Spontaneous
  Country: US (occurrence: None)
  Receive Date: 20160203
  Receipt Date: 20160203
  Transmission Date: 20160526
  Serious: Yes (Life-Threatening)
  Sender: FDA-Public Use
  Company Number: None

PATIENT
  Age: 16 Year
  Sex: Female
  Weight: 52.8 kg

DRUGS (2)
  1. VINCRISTINE 2 MG/2 ML HOSPIRA [Suspect]
     Active Substance: VINCRISTINE SULFATE
     Indication: PRECURSOR T-LYMPHOBLASTIC LYMPHOMA/LEUKAEMIA
     Route: 042
     Dates: start: 20160201, end: 20160201
  2. NORMAL SALINE 0.9% HOSPIRA [Suspect]
     Active Substance: SODIUM CHLORIDE
     Indication: PRODUCT USED FOR UNKNOWN INDICATION
     Route: 042
     Dates: start: 20160201, end: 20160201

REACTIONS (3)
  - Throat tightness [None]
  - Cough [None]
  - Flushing [None]

NARRATIVE: CASE EVENT DATE: 20160201
